FAERS Safety Report 5573051-1 (Version None)
Quarter: 2007Q4

REPORT INFORMATION
  Report Type: 
  Country: None (occurrence: None)
  Receive Date: 20071224
  Receipt Date: 20071211
  Transmission Date: 20080405
  Serious: Yes (Hospitalization)
  Sender: FDA-Public Use
  Company Number: JP-ROCHE-537009

PATIENT
  Age: 73 Year
  Sex: Male

DRUGS (17)
  1. GRANISETRON  HCL [Suspect]
     Route: 041
     Dates: start: 20061023, end: 20071023
  2. 1 CONCOMITANT DRUG [Suspect]
     Route: 042
     Dates: start: 20061023, end: 20061023
  3. CISPLATIN [Suspect]
     Route: 042
     Dates: start: 20061023, end: 20061023
  4. IRINOTECAN HCL [Suspect]
     Route: 041
     Dates: start: 20061023, end: 20061023
  5. DEXAMETHASONE SODIUM PHOSPHATE [Suspect]
     Route: 042
     Dates: start: 20061023, end: 20061023
  6. DEXAMETHASONE SODIUM PHOSPHATE [Suspect]
     Route: 042
     Dates: start: 20061024, end: 20061025
  7. MARZULENE [Concomitant]
     Route: 048
     Dates: end: 20061025
  8. SELBEX [Concomitant]
     Route: 048
     Dates: end: 20061102
  9. AMLODIN [Concomitant]
     Route: 048
     Dates: end: 20061102
  10. URSO 250 [Concomitant]
     Route: 048
     Dates: end: 20061102
  11. POLYCARBOPHIL [Concomitant]
     Route: 048
     Dates: end: 20061102
  12. AMOBAN [Concomitant]
     Dosage: TAKEN AS NEEDED.
     Route: 048
     Dates: start: 20061022, end: 20061102
  13. FAMOTIDINE [Concomitant]
     Route: 048
     Dates: start: 20061024, end: 20061025
  14. ALUMINIUM HYDROXIDE/MAGNESIUM HYDROXIDE [Concomitant]
     Route: 048
     Dates: start: 20061025
  15. NAUZELIN [Concomitant]
     Route: 048
     Dates: start: 20061029, end: 20061102
  16. CALONAL [Concomitant]
     Dosage: TAKEN AS NEEDED.
     Route: 048
     Dates: start: 20061031
  17. MAXIPIME [Concomitant]
     Route: 042
     Dates: start: 20061102

REACTIONS (1)
  - GASTRIC ULCER [None]
